FAERS Safety Report 25299848 (Version 1)
Quarter: 2025Q2

REPORT INFORMATION
  Report Type: Spontaneous
  Country: FR (occurrence: FR)
  Receive Date: 20250512
  Receipt Date: 20250512
  Transmission Date: 20250717
  Serious: Yes (Other)
  Sender: MYLAN
  Company Number: None

PATIENT
  Age: 38 Year
  Sex: Male

DRUGS (28)
  1. PREGABALIN [Suspect]
     Active Substance: PREGABALIN
     Indication: Product used for unknown indication
  2. PREGABALIN [Suspect]
     Active Substance: PREGABALIN
  3. PREGABALIN [Suspect]
     Active Substance: PREGABALIN
     Route: 048
  4. PREGABALIN [Suspect]
     Active Substance: PREGABALIN
     Route: 048
  5. PREGABALIN [Suspect]
     Active Substance: PREGABALIN
     Dates: start: 20250325, end: 20250325
  6. PREGABALIN [Suspect]
     Active Substance: PREGABALIN
     Dates: start: 20250325, end: 20250325
  7. PREGABALIN [Suspect]
     Active Substance: PREGABALIN
     Route: 048
     Dates: start: 20250325, end: 20250325
  8. PREGABALIN [Suspect]
     Active Substance: PREGABALIN
     Route: 048
     Dates: start: 20250325, end: 20250325
  9. VALIUM [Suspect]
     Active Substance: DIAZEPAM
     Indication: Product used for unknown indication
  10. VALIUM [Suspect]
     Active Substance: DIAZEPAM
  11. VALIUM [Suspect]
     Active Substance: DIAZEPAM
     Route: 048
  12. VALIUM [Suspect]
     Active Substance: DIAZEPAM
     Route: 048
  13. VALIUM [Suspect]
     Active Substance: DIAZEPAM
     Dates: start: 20250325, end: 20250325
  14. VALIUM [Suspect]
     Active Substance: DIAZEPAM
     Dates: start: 20250325, end: 20250325
  15. VALIUM [Suspect]
     Active Substance: DIAZEPAM
     Route: 048
     Dates: start: 20250325, end: 20250325
  16. VALIUM [Suspect]
     Active Substance: DIAZEPAM
     Route: 048
     Dates: start: 20250325, end: 20250325
  17. CYAMEMAZINE [Suspect]
     Active Substance: CYAMEMAZINE
     Indication: Product used for unknown indication
  18. CYAMEMAZINE [Suspect]
     Active Substance: CYAMEMAZINE
  19. CYAMEMAZINE [Suspect]
     Active Substance: CYAMEMAZINE
     Route: 048
  20. CYAMEMAZINE [Suspect]
     Active Substance: CYAMEMAZINE
     Route: 048
  21. CYAMEMAZINE [Suspect]
     Active Substance: CYAMEMAZINE
     Dates: start: 20250325, end: 20250325
  22. CYAMEMAZINE [Suspect]
     Active Substance: CYAMEMAZINE
     Dates: start: 20250325, end: 20250325
  23. CYAMEMAZINE [Suspect]
     Active Substance: CYAMEMAZINE
     Route: 048
     Dates: start: 20250325, end: 20250325
  24. CYAMEMAZINE [Suspect]
     Active Substance: CYAMEMAZINE
     Route: 048
     Dates: start: 20250325, end: 20250325
  25. CANNABIS SATIVA SUBSP. INDICA TOP [Concomitant]
     Active Substance: CANNABIS SATIVA SUBSP. INDICA TOP
  26. CANNABIS SATIVA SUBSP. INDICA TOP [Concomitant]
     Active Substance: CANNABIS SATIVA SUBSP. INDICA TOP
     Route: 065
  27. CANNABIS SATIVA SUBSP. INDICA TOP [Concomitant]
     Active Substance: CANNABIS SATIVA SUBSP. INDICA TOP
     Route: 065
  28. CANNABIS SATIVA SUBSP. INDICA TOP [Concomitant]
     Active Substance: CANNABIS SATIVA SUBSP. INDICA TOP

REACTIONS (4)
  - Substance abuse [Unknown]
  - Coma [Recovered/Resolved]
  - Bradypnoea [Recovered/Resolved]
  - Intentional overdose [Recovered/Resolved]

NARRATIVE: CASE EVENT DATE: 20250325
